FAERS Safety Report 7556339-4 (Version None)
Quarter: 2011Q2

REPORT INFORMATION
  Report Type: 
  Country: None (occurrence: None)
  Receive Date: 20110620
  Receipt Date: 20110609
  Transmission Date: 20111010
  Serious: No
  Sender: FDA-Public Use
  Company Number: US-JNJFOC-20110605561

PATIENT
  Sex: Male
  Weight: 99.79 kg

DRUGS (1)
  1. DURAGESIC-100 [Suspect]
     Indication: NEUROPATHY PERIPHERAL
     Route: 062
     Dates: start: 20040101

REACTIONS (3)
  - THERAPEUTIC RESPONSE DECREASED [None]
  - HYPERHIDROSIS [None]
  - DRUG DOSE OMISSION [None]
